FAERS Safety Report 7571440-7 (Version None)
Quarter: 2011Q2

REPORT INFORMATION
  Report Type: 
  Country: None (occurrence: None)
  Receive Date: 20110624
  Receipt Date: 20110614
  Transmission Date: 20111010
  Serious: Yes (Other)
  Sender: FDA-Public Use
  Company Number: JP-ASTRAZENECA-2011SE37342

PATIENT
  Sex: Male

DRUGS (3)
  1. SEROQUEL [Suspect]
     Indication: BIPOLAR DISORDER
     Route: 048
  2. CYMBALTA [Suspect]
     Indication: BIPOLAR DISORDER
  3. MIRTAZAPINE [Suspect]
     Indication: BIPOLAR DISORDER

REACTIONS (2)
  - OFF LABEL USE [None]
  - HEPATITIS FULMINANT [None]
